FAERS Safety Report 8586519-0 (Version None)
Quarter: 2012Q3

REPORT INFORMATION
  Report Type: 
  Country: None (occurrence: None)
  Receive Date: 20120810
  Receipt Date: 20120731
  Transmission Date: 20120928
  Serious: Yes (Other)
  Sender: FDA-Public Use
  Company Number: AU-JNJFOC-20120703894

PATIENT
  Sex: Female

DRUGS (3)
  1. STELARA [Suspect]
     Indication: PSORIASIS
     Route: 058
     Dates: start: 20120706
  2. CELAPRAM [Concomitant]
     Indication: ANXIETY
  3. CELAPRAM [Concomitant]
     Indication: DEPRESSION

REACTIONS (8)
  - CONVULSION [None]
  - OEDEMA PERIPHERAL [None]
  - ARTHRALGIA [None]
  - PAIN [None]
  - MYALGIA [None]
  - VISION BLURRED [None]
  - DIZZINESS [None]
  - BACK PAIN [None]
